FAERS Safety Report 9018886 (Version 2)
Quarter: 2013Q2

REPORT INFORMATION
  Report Type: Spontaneous
  Country: IE (occurrence: IE)
  Receive Date: 20130118
  Receipt Date: 20130607
  Transmission Date: 20140414
  Serious: Yes (Hospitalization, Other)
  Sender: FDA-Public Use
  Company Number: IE-B.I. PHARMACEUTICALS,INC./RIDGEFIELD-2013-UK-00056UK

PATIENT
  Sex: Female
  Weight: 70 kg

DRUGS (6)
  1. PRADAXA [Suspect]
     Dosage: 220 MG
     Route: 048
     Dates: start: 20110701, end: 20121220
  2. ELTROXIN [Concomitant]
     Dosage: 75/100 MG ALT DAYS
  3. EZETROL [Concomitant]
     Dosage: 10 MG
  4. LIPANTIL MICRO [Concomitant]
     Dosage: 200 MG
  5. DETRUSITOL SR [Concomitant]
     Dosage: 4 MG
  6. KEPPRA LEVETIRACETAM [Concomitant]
     Dosage: 250 MG

REACTIONS (2)
  - Cerebrovascular accident [Not Recovered/Not Resolved]
  - Drug ineffective [Not Recovered/Not Resolved]
